FAERS Safety Report 8436097-1 (Version None)
Quarter: 2012Q2

REPORT INFORMATION
  Report Type: 
  Country: None (occurrence: None)
  Receive Date: 20120614
  Receipt Date: 20120608
  Transmission Date: 20120825
  Serious: Yes (Other)
  Sender: FDA-Public Use
  Company Number: PHHY2012CN050717

PATIENT
  Age: 30 Year
  Sex: Male

DRUGS (1)
  1. SEBIVO [Suspect]
     Indication: HEPATITIS B
     Dosage: 600 MG, UNK
     Route: 048
     Dates: start: 20120401

REACTIONS (3)
  - LIPOMA [None]
  - EXPOSURE VIA FATHER [None]
  - CONDITION AGGRAVATED [None]
